FAERS Safety Report 12855760 (Version 1)
Quarter: 2016Q4

REPORT INFORMATION
  Report Type: Report from Study
  Country: FR (occurrence: FR)
  Receive Date: 20161018
  Receipt Date: 20161018
  Transmission Date: 20170207
  Serious: Yes (Death, Hospitalization)
  Sender: FDA-Public Use
  Company Number: FR-ROCHE-1841255

PATIENT
  Sex: Male

DRUGS (6)
  1. RITUXIMAB [Suspect]
     Active Substance: RITUXIMAB
     Indication: RHEUMATOID ARTHRITIS
     Route: 042
     Dates: start: 20090305
  2. PARACETAMOL [Concomitant]
     Active Substance: ACETAMINOPHEN
  3. RITUXIMAB [Suspect]
     Active Substance: RITUXIMAB
     Route: 042
     Dates: start: 20091020, end: 20091020
  4. CORTANCYL [Concomitant]
     Active Substance: PREDNISONE
     Dosage: 20/OCT/2009
     Route: 065
     Dates: start: 20090319
  5. RITUXIMAB [Suspect]
     Active Substance: RITUXIMAB
     Route: 042
     Dates: start: 20090319
  6. ABATACEPT [Concomitant]
     Active Substance: ABATACEPT
     Route: 065
     Dates: start: 20091120

REACTIONS (10)
  - Intervertebral disc disorder [Recovered/Resolved]
  - Renal failure [Not Recovered/Not Resolved]
  - Cardiac failure [Fatal]
  - Infusion related reaction [Recovered/Resolved]
  - Hypertension [Not Recovered/Not Resolved]
  - Spinal disorder [Recovered/Resolved]
  - Actinic keratosis [Unknown]
  - Osteoarthritis [Not Recovered/Not Resolved]
  - Chronic obstructive pulmonary disease [Not Recovered/Not Resolved]
  - Nodule [Not Recovered/Not Resolved]

NARRATIVE: CASE EVENT DATE: 20090703
